FAERS Safety Report 8308586 (Version 4)
Quarter: 2013Q1

REPORT INFORMATION
  Report Type: Spontaneous
  Country: BR (occurrence: BR)
  Receive Date: 20111222
  Receipt Date: 20130121
  Transmission Date: 20140127
  Serious: Yes (Hospitalization, Other)
  Sender: FDA-Public Use
  Company Number: PHHY2011BR42626

PATIENT
  Age: 76 Year
  Sex: Female
  Weight: 56 kg

DRUGS (6)
  1. DIOVAN [Suspect]
     Indication: HYPERTENSION
     Dosage: 1 DF (160 MG), QD (MORNING)
     Route: 048
     Dates: start: 2009
  2. CALTRATE [Concomitant]
     Indication: OSTEOPOROSIS
     Dosage: 600 MG, QD
     Route: 048
  3. CALTRATE [Concomitant]
     Indication: BACK PAIN
  4. BONALON [Concomitant]
     Indication: OSTEOPOROSIS
     Dosage: 1 DF (70 MG), QW
  5. BONALON [Concomitant]
     Indication: BACK PAIN
  6. CELESTAMINE [Concomitant]
     Dosage: 8 MG, QD
     Dates: start: 20120126

REACTIONS (12)
  - Bronchitis [Recovered/Resolved]
  - Pneumonia [Recovered/Resolved]
  - Neck pain [Recovered/Resolved]
  - Fatigue [Recovered/Resolved]
  - Headache [Recovered/Resolved]
  - Cough [Recovered/Resolved]
  - Leukaemia [Not Recovered/Not Resolved]
  - Hypertension [Recovered/Resolved]
  - Asthenia [Recovered/Resolved]
  - Feeling abnormal [Recovered/Resolved]
  - Memory impairment [Recovered/Resolved]
  - Somnolence [Not Recovered/Not Resolved]
